FAERS Safety Report 7760258-8 (Version None)
Quarter: 2011Q3

REPORT INFORMATION
  Report Type: 
  Country: None (occurrence: None)
  Receive Date: 20110919
  Receipt Date: 20110913
  Transmission Date: 20111222
  Serious: Yes (Hospitalization)
  Sender: FDA-Public Use
  Company Number: DE-VIIV HEALTHCARE LIMITED-B0746203A

PATIENT
  Sex: Male
  Weight: 108 kg

DRUGS (13)
  1. FOSAMPRENAVIR [Suspect]
     Indication: HIV INFECTION
     Dosage: 700MG TWICE PER DAY
     Route: 048
     Dates: start: 20060509
  2. THEOPHYLLINE [Concomitant]
     Indication: ASTHMA
     Route: 048
  3. BETAXOLOL [Concomitant]
     Indication: HYPERTENSION
     Route: 048
  4. HYDROCHLOROTHIAZIDE [Concomitant]
     Indication: DIURETIC THERAPY
     Route: 048
  5. RITONAVIR [Suspect]
     Indication: HIV INFECTION
     Dosage: 100MG TWICE PER DAY
     Route: 048
     Dates: start: 20060509
  6. MARCUMAR [Concomitant]
     Indication: POST THROMBOTIC SYNDROME
     Route: 048
  7. ALLOPURINOL [Concomitant]
     Indication: GOUT
     Route: 048
  8. TAMSULOSIN HCL [Concomitant]
     Indication: INCONTINENCE
     Route: 048
  9. MARAVIROC [Suspect]
     Indication: HIV INFECTION
     Dosage: 300MG TWICE PER DAY
     Route: 048
     Dates: start: 20100701
  10. MIRTAZAPINE [Concomitant]
     Indication: DEPRESSION
     Route: 048
  11. OMEPRAZOLE [Concomitant]
     Indication: GASTROINTESTINAL DISORDER
     Route: 048
  12. ATACAND [Concomitant]
     Indication: HYPERTENSION
     Route: 048
  13. PAROXETINE HCL [Concomitant]
     Indication: DEPRESSION
     Route: 048

REACTIONS (1)
  - CARDIAC FAILURE [None]
